FAERS Safety Report 17884416 (Version 11)
Quarter: 2022Q4

REPORT INFORMATION
  Report Type: Spontaneous
  Country: US (occurrence: US)
  Receive Date: 20200611
  Receipt Date: 20221104
  Transmission Date: 20230112
  Serious: Yes (Other)
  Sender: FDA-Public Use
  Company Number: US-PFIZER INC-2020226058

PATIENT
  Age: 83 Year
  Sex: Female
  Weight: 76.2 kg

DRUGS (6)
  1. PREMARIN [Suspect]
     Active Substance: ESTROGENS, CONJUGATED
     Indication: Hot flush
     Dosage: 0.625 MG, 1X/DAY
     Dates: start: 1987
  2. PREMARIN [Suspect]
     Active Substance: ESTROGENS, CONJUGATED
     Indication: Hysterectomy
     Dosage: 0.625 MG, 1X/DAY
     Route: 048
  3. PREMARIN [Suspect]
     Active Substance: ESTROGENS, CONJUGATED
     Dosage: 0.25 MG
     Route: 048
  4. PREMARIN [Suspect]
     Active Substance: ESTROGENS, CONJUGATED
     Dosage: 0.25 MG, ALTERNATE DAY
     Route: 048
  5. PREMARIN [Suspect]
     Active Substance: ESTROGENS, CONJUGATED
     Dosage: UNK
  6. PREMARIN [Suspect]
     Active Substance: ESTROGENS, CONJUGATED
     Dosage: 1 DF, DAILY

REACTIONS (11)
  - Drug dependence [Unknown]
  - Hip arthroplasty [Unknown]
  - Gait inability [Unknown]
  - Product prescribing error [Unknown]
  - Hypoacusis [Unknown]
  - Arthritis [Unknown]
  - Pain in extremity [Unknown]
  - COVID-19 [Unknown]
  - Eye disorder [Unknown]
  - Drug ineffective [Unknown]
  - Intentional product misuse [Unknown]
